FAERS Safety Report 9154192 (Version 1)
Quarter: 2013Q1

REPORT INFORMATION
  Report Type: Spontaneous
  Country: US (occurrence: None)
  Receive Date: 20130308
  Receipt Date: 20130308
  Transmission Date: 20140127
  Serious: No
  Sender: FDA-Public Use
  Company Number: None

PATIENT
  Age: 86 Year
  Sex: Female
  Weight: 62.14 kg

DRUGS (1)
  1. CATAPRES [Suspect]
     Indication: HYPERTENSION
     Dosage: 1 0.2 3DA MOUTH
     Route: 048
     Dates: start: 20130215

REACTIONS (3)
  - Malaise [None]
  - Blood pressure increased [None]
  - Product substitution issue [None]
